FAERS Safety Report 6019188-4 (Version None)
Quarter: 2008Q4

REPORT INFORMATION
  Report Type: 
  Country: None (occurrence: None)
  Receive Date: 20081224
  Receipt Date: 20081218
  Transmission Date: 20090506
  Serious: Yes (Hospitalization)
  Sender: FDA-Public Use
  Company Number: JP-PFIZER INC-2008156995

PATIENT

DRUGS (5)
  1. SUNITINIB MALATE [Suspect]
     Indication: COLORECTAL CANCER
     Dosage: 25 MG, 1X/DAY
     Route: 048
  2. IRINOTECAN HCL [Suspect]
     Indication: COLORECTAL CANCER
     Dosage: 175 MG, DAILY, EVERY 2 WEEKS
     Route: 042
  3. CALCIUM FOLINATE [Suspect]
     Indication: COLORECTAL CANCER
     Dosage: 304 MG, DAILY, EVERY 2 WEEKS
     Route: 042
  4. FLUOROURACIL [Suspect]
     Indication: COLORECTAL CANCER
     Dosage: 304 MG, BOLUS, DAILY, EVERY 2 WEEKS
     Route: 042
  5. FLUOROURACIL [Suspect]
     Dosage: 2918 MG, CONTINUOUS INFUSION, EVERY 2 WEEKS

REACTIONS (1)
  - ILEUS [None]
